FAERS Safety Report 6594601-2 (Version None)
Quarter: 2010Q1

REPORT INFORMATION
  Report Type: 
  Country: None (occurrence: None)
  Receive Date: 20100222
  Receipt Date: 20090128
  Transmission Date: 20100710
  Serious: No
  Sender: FDA-Public Use
  Company Number: US-BRISTOL-MYERS SQUIBB COMPANY-14486302

PATIENT
  Age: 71 Year
  Sex: Female
  Weight: 50 kg

DRUGS (5)
  1. TAXOL [Suspect]
     Indication: SMALL CELL LUNG CANCER STAGE UNSPECIFIED
     Dates: start: 20090127
  2. TAXOL [Suspect]
     Indication: HEPATIC NEOPLASM MALIGNANT
     Dates: start: 20090127
  3. TOPROL-XL [Concomitant]
  4. LIPITOR [Concomitant]
  5. BENADRYL [Concomitant]
     Indication: PREMEDICATION

REACTIONS (1)
  - GAIT DISTURBANCE [None]
